FAERS Safety Report 14505377 (Version 1)
Quarter: 2018Q1

REPORT INFORMATION
  Report Type: Spontaneous
  Country: US (occurrence: US)
  Receive Date: 20180207
  Receipt Date: 20180207
  Transmission Date: 20180509
  Serious: No
  Sender: FDA-Public Use
  Company Number: None

PATIENT
  Sex: Female
  Weight: 61.2 kg

DRUGS (1)
  1. HYRDOCORTISONE [Suspect]
     Active Substance: HYDROCORTISONE
     Indication: SEBORRHOEIC DERMATITIS

REACTIONS (3)
  - Skin exfoliation [None]
  - Dry skin [None]
  - Pruritus [None]
